FAERS Safety Report 23246955 (Version 1)
Quarter: 2023Q4

REPORT INFORMATION
  Report Type: Report from Study
  Country: CA (occurrence: CA)
  Receive Date: 20231130
  Receipt Date: 20231130
  Transmission Date: 20240109
  Serious: Yes (Hospitalization, Other)
  Sender: FDA-Public Use
  Company Number: CA-PFIZER INC-202300410720

PATIENT
  Age: 79 Year
  Sex: Female

DRUGS (2)
  1. METHOTREXATE SODIUM [Suspect]
     Active Substance: METHOTREXATE SODIUM
     Route: 065
  2. ERELZI [Suspect]
     Active Substance: ETANERCEPT-SZZS
     Indication: Rheumatoid arthritis
     Dosage: 50 MG
     Route: 058

REACTIONS (5)
  - Cough [Recovering/Resolving]
  - Fatigue [Recovering/Resolving]
  - Pulmonary fibrosis [Recovering/Resolving]
  - SARS-CoV-2 test positive [Recovering/Resolving]
  - COVID-19 [Recovering/Resolving]
